FAERS Safety Report 9116249 (Version 1)
Quarter: 2013Q1

REPORT INFORMATION
  Report Type: Report from Study
  Country: CA (occurrence: CA)
  Receive Date: 20130225
  Receipt Date: 20130225
  Transmission Date: 20140127
  Serious: Yes (Other)
  Sender: FDA-Public Use
  Company Number: CA-JNJFOC-20130209062

PATIENT
  Age: 44 Year
  Sex: Female
  Weight: 82 kg

DRUGS (3)
  1. REMICADE [Suspect]
     Indication: CROHN^S DISEASE
     Route: 042
     Dates: start: 20110623
  2. FLUCONAZOLE [Concomitant]
     Dosage: 1/2 TB WEEKLY
     Route: 065
  3. AZATHIOPRINE [Concomitant]
     Route: 065

REACTIONS (1)
  - Hand fracture [Unknown]
